FAERS Safety Report 6475557-X (Version None)
Quarter: 2009Q4

REPORT INFORMATION
  Report Type: 
  Country: None (occurrence: None)
  Receive Date: 20091204
  Receipt Date: 20091123
  Transmission Date: 20100525
  Serious: Yes (Hospitalization)
  Sender: FDA-Public Use
  Company Number: FR-PFIZER INC-2009301178

PATIENT
  Age: 81 Year
  Sex: Female

DRUGS (10)
  1. LYRICA [Suspect]
     Indication: NEUROPATHY PERIPHERAL
     Dosage: 25 MG PER DAY
     Route: 048
  2. LYRICA [Suspect]
     Dosage: 100 MG PER DAY
     Route: 048
     Dates: start: 20090801, end: 20090918
  3. TOPALGIC [Suspect]
     Indication: NEURALGIA
     Dosage: 150 MG, 2X/DAY
     Route: 048
     Dates: start: 20080101, end: 20091101
  4. ALLOPURINOL [Concomitant]
     Dosage: 200 MG, 1X/DAY
     Route: 048
  5. FUMAFER [Concomitant]
     Dosage: 66 MG, 3X/DAY
     Route: 048
  6. VALSARTAN AND HYDROCHLOROTHIAZIDE [Concomitant]
     Indication: HYPERTENSION
     Dosage: 1 DF, 1X/DAY
     Route: 048
  7. LEXOMIL [Concomitant]
     Dosage: 6 MG, 1X/DAY
     Route: 048
  8. LASILIX [Concomitant]
     Indication: HYPERTENSION
     Dosage: 40 MG, 1X/DAY
     Route: 048
  9. OMEPRAZOLE [Concomitant]
     Dosage: 20 MG, 1X/DAY
     Route: 048
  10. DOLIPRANE [Concomitant]
     Dosage: 1000 MG, 3X/DAY
     Route: 048

REACTIONS (3)
  - CONFUSIONAL STATE [None]
  - FALL [None]
  - MALAISE [None]
